FAERS Safety Report 23944106 (Version 3)
Quarter: 2024Q3

REPORT INFORMATION
  Report Type: Spontaneous
  Country: BR (occurrence: BR)
  Receive Date: 20240606
  Receipt Date: 20240729
  Transmission Date: 20241016
  Serious: Yes (Other)
  Sender: BOEHRINGER INGELHEIM
  Company Number: BR-BoehringerIngelheim-2024-BI-031760

PATIENT
  Age: 74 Year
  Sex: Female

DRUGS (2)
  1. PRADAXA [Suspect]
     Active Substance: DABIGATRAN ETEXILATE MESYLATE
     Indication: Thrombosis
     Route: 048
  2. PRADAXA [Suspect]
     Active Substance: DABIGATRAN ETEXILATE MESYLATE
     Indication: Pulmonary embolism

REACTIONS (14)
  - Feeling abnormal [Unknown]
  - Thyroid mass [Unknown]
  - Weight decreased [Unknown]
  - Anxiety [Unknown]
  - Decreased appetite [Unknown]
  - Asthenia [Unknown]
  - Malaise [Unknown]
  - Osteoarthritis [Unknown]
  - Product packaging quantity issue [Unknown]
  - Fibromyalgia [Unknown]
  - Arthralgia [Unknown]
  - Limb mass [Unknown]
  - Headache [Unknown]
  - Angioplasty [Unknown]

NARRATIVE: CASE EVENT DATE: 20220101
